FAERS Safety Report 8253054-9 (Version None)
Quarter: 2012Q2

REPORT INFORMATION
  Report Type: 
  Country: None (occurrence: None)
  Receive Date: 20120402
  Receipt Date: 20120301
  Transmission Date: 20120825
  Serious: No
  Sender: FDA-Public Use
  Company Number: US-AMGEN-USASP2012013786

PATIENT
  Sex: Female

DRUGS (1)
  1. ENBREL [Suspect]
     Indication: RHEUMATOID ARTHRITIS
     Dosage: 50 MG, UNK

REACTIONS (8)
  - HYPOAESTHESIA [None]
  - NIGHT SWEATS [None]
  - WEIGHT INCREASED [None]
  - BURNING SENSATION [None]
  - FATIGUE [None]
  - INCREASED TENDENCY TO BRUISE [None]
  - PARAESTHESIA [None]
  - HAEMORRHAGIC DIATHESIS [None]
